FAERS Safety Report 19205710 (Version 1)
Quarter: 2021Q2

REPORT INFORMATION
  Report Type: Spontaneous
  Country: US (occurrence: US)
  Receive Date: 20210503
  Receipt Date: 20210503
  Transmission Date: 20210717
  Serious: No
  Sender: FDA-Public Use
  Company Number: US-FARMAPROD-202102-0250

PATIENT
  Sex: Female

DRUGS (15)
  1. SIROLIMUS. [Concomitant]
     Active Substance: SIROLIMUS
  2. REFRESH CLASSIC [Concomitant]
     Active Substance: POLYVINYL ALCOHOL\POVIDONE
  3. ATIVAN [Concomitant]
     Active Substance: LORAZEPAM
  4. PANTOPRAZOLE SODIUM. [Concomitant]
     Active Substance: PANTOPRAZOLE SODIUM
     Dosage: DELAYED RELEASE TABLET
  5. PREDNISONE. [Concomitant]
     Active Substance: PREDNISONE
  6. TACROLIMUS. [Concomitant]
     Active Substance: TACROLIMUS
  7. ASPIRINE [Concomitant]
     Active Substance: ASPIRIN
  8. OXERVATE [Suspect]
     Active Substance: CENEGERMIN-BKBJ
     Indication: NEUROTROPHIC KERATOPATHY
     Route: 047
     Dates: start: 20210203
  9. VALTREX [Concomitant]
     Active Substance: VALACYCLOVIR HYDROCHLORIDE
  10. VITAMIN E [Concomitant]
     Active Substance: .ALPHA.-TOCOPHEROL
     Dosage: LIQUID
  11. VITAMINE C [Concomitant]
     Active Substance: ASCORBIC ACID
  12. ZIRGAN [Concomitant]
     Active Substance: GANCICLOVIR
  13. LEVOTHYROXINE. [Concomitant]
     Active Substance: LEVOTHYROXINE
  14. CALCIUM/VITAMINE D3 [Concomitant]
     Dosage: 600?500 MG EXTENDED RELEASE TABLET
  15. OFLOXACIN. [Concomitant]
     Active Substance: OFLOXACIN

REACTIONS (1)
  - Eye pain [Unknown]
